FAERS Safety Report 5609548-5 (Version None)
Quarter: 2008Q1

REPORT INFORMATION
  Report Type: 
  Country: None (occurrence: None)
  Receive Date: 20080131
  Receipt Date: 20080129
  Transmission Date: 20080703
  Serious: No
  Sender: FDA-Public Use
  Company Number: US-BOEHRINGER INGELHEIM GMBH, GERMANY-2008-BP-00408BP

PATIENT
  Age: 74 Year
  Sex: Female

DRUGS (5)
  1. AGGRENOX [Suspect]
     Indication: ANTICOAGULANT THERAPY
     Dates: start: 20071120, end: 20071120
  2. LEXAPRO [Suspect]
     Indication: DEPRESSION
     Route: 048
     Dates: start: 20071116
  3. LEVOXYL [Concomitant]
  4. ASPIRIN [Concomitant]
     Dates: start: 20071119
  5. LESCOL [Concomitant]

REACTIONS (3)
  - BLOOD PRESSURE DECREASED [None]
  - CLAUSTROPHOBIA [None]
  - HEADACHE [None]
